FAERS Safety Report 8117244-8 (Version None)
Quarter: 2012Q1

REPORT INFORMATION
  Report Type: 
  Country: None (occurrence: None)
  Receive Date: 20120206
  Receipt Date: 20120131
  Transmission Date: 20120608
  Serious: Yes (Disabling, Other)
  Sender: FDA-Public Use
  Company Number: BR-PFIZER INC-2012027103

PATIENT
  Age: 60 Year
  Sex: Male

DRUGS (1)
  1. EFFEXOR XR [Suspect]
     Indication: DEPRESSION
     Dosage: 75 MG, 1X/DAY (1 CAPSULE DAILY)
     Route: 048
     Dates: start: 20080101, end: 20120101

REACTIONS (4)
  - DIABETES MELLITUS [None]
  - DAYDREAMING [None]
  - TINNITUS [None]
  - ACTIVITIES OF DAILY LIVING IMPAIRED [None]
